FAERS Safety Report 6029147-3 (Version None)
Quarter: 2009Q1

REPORT INFORMATION
  Report Type: 
  Country: None (occurrence: None)
  Receive Date: 20090102
  Receipt Date: 20081217
  Transmission Date: 20090719
  Serious: Yes (Other)
  Sender: FDA-Public Use
  Company Number: 2008S1012535

PATIENT
  Age: 34 Year
  Sex: Female

DRUGS (1)
  1. SODIUM PHOSPHATE DIBASIC/SODIUM PHOSPHATE [Suspect]
     Indication: BOWEL PREPARATION
     Dosage: RTL

REACTIONS (6)
  - APPLICATION SITE OEDEMA [None]
  - HAEMORRHOIDS [None]
  - HEAD INJURY [None]
  - PERIANAL ERYTHEMA [None]
  - RECTAL HAEMORRHAGE [None]
  - ROAD TRAFFIC ACCIDENT [None]
